FAERS Safety Report 20938256 (Version 6)
Quarter: 2022Q3

REPORT INFORMATION
  Report Type: Report from Study
  Country: FR (occurrence: None)
  Receive Date: 20220609
  Receipt Date: 20220811
  Transmission Date: 20221027
  Serious: Yes (Hospitalization)
  Sender: FDA-Public Use
  Company Number: FR-ROCHE-3112063

PATIENT
  Age: 53 Year
  Sex: Male
  Weight: 57 kg

DRUGS (22)
  1. PLACEBO [Suspect]
     Active Substance: UNSPECIFIED INGREDIENT
     Indication: Squamous cell carcinoma of head and neck
     Dosage: START DATE OF MOST RECENT DOSE OF STUDY DRUG?PRIOR TO AE, SAE 06-MAY-2022
     Route: 042
     Dates: start: 20220415
  2. ATEZOLIZUMAB [Suspect]
     Active Substance: ATEZOLIZUMAB
     Indication: Squamous cell carcinoma of head and neck
     Dosage: START DATE OF MOST RECENT DOSE OF STUDY DRUG?PRIOR TO AE, SAE 06-MAY-2022
     Route: 041
     Dates: start: 20220415
  3. MORPHINE SULFATE [Concomitant]
     Active Substance: MORPHINE SULFATE
     Indication: Pain
     Route: 048
     Dates: start: 202204, end: 20220505
  4. MORPHINE SULFATE [Concomitant]
     Active Substance: MORPHINE SULFATE
     Route: 048
     Dates: start: 20220506
  5. POLYETHYLENE GLYCOLS [Concomitant]
     Active Substance: POLYETHYLENE GLYCOLS
     Indication: Constipation
     Dosage: 1U
     Route: 048
     Dates: start: 202204
  6. ACETAMINOPHEN [Concomitant]
     Active Substance: ACETAMINOPHEN
     Indication: Pain
     Route: 048
     Dates: start: 202204
  7. FENTANYL [Concomitant]
     Active Substance: FENTANYL
     Indication: Pain
     Route: 062
     Dates: start: 20220425, end: 20220505
  8. FENTANYL [Concomitant]
     Active Substance: FENTANYL
     Route: 062
     Dates: start: 20220506, end: 20220522
  9. FENTANYL [Concomitant]
     Active Substance: FENTANYL
     Route: 062
     Dates: start: 20220523
  10. NALOXEGOL [Concomitant]
     Active Substance: NALOXEGOL
     Indication: Constipation
     Route: 048
     Dates: start: 20220506
  11. SODIUM BICARBONATE [Concomitant]
     Active Substance: SODIUM BICARBONATE
     Indication: Breath odour
     Dosage: 1 U
     Route: 048
     Dates: start: 20220506
  12. RBC TRANSFUSION [Concomitant]
     Indication: Shock haemorrhagic
     Dosage: 6 U
     Route: 042
     Dates: start: 20220509, end: 20220509
  13. CACL2 [Concomitant]
     Indication: Shock haemorrhagic
     Dosage: UNKNOWN
     Route: 042
     Dates: start: 20220509, end: 20220509
  14. TRANEXAMIC ACID [Concomitant]
     Active Substance: TRANEXAMIC ACID
     Indication: Shock haemorrhagic
     Route: 042
     Dates: start: 20220509
  15. CEFOTAXIME [Concomitant]
     Active Substance: CEFOTAXIME SODIUM
     Indication: Pneumonia aspiration
     Route: 042
     Dates: start: 20220511, end: 20220513
  16. FLAGYL [Concomitant]
     Active Substance: METRONIDAZOLE\METRONIDAZOLE HYDROCHLORIDE
     Indication: Pneumonia aspiration
     Route: 042
     Dates: start: 20220511, end: 20220513
  17. ACUPAN [Concomitant]
     Active Substance: NEFOPAM HYDROCHLORIDE
     Indication: Pain
     Route: 042
     Dates: start: 20220513
  18. PIPERACILLIN SODIUM\TAZOBACTAM SODIUM [Concomitant]
     Active Substance: PIPERACILLIN SODIUM\TAZOBACTAM SODIUM
     Indication: Pneumonia aspiration
     Route: 042
     Dates: start: 20220514, end: 20220527
  19. NEFOPAM [Concomitant]
     Active Substance: NEFOPAM
     Indication: Pain
     Route: 042
     Dates: start: 20220523
  20. FLUOROURACIL [Concomitant]
     Active Substance: FLUOROURACIL
     Indication: Neoplasm malignant
     Dates: start: 20220607
  21. CARBOPLATIN [Concomitant]
     Active Substance: CARBOPLATIN
     Indication: Neoplasm malignant
     Dates: start: 20220607
  22. PEMBROLIZUMAB [Concomitant]
     Active Substance: PEMBROLIZUMAB
     Indication: Neoplasm malignant
     Dates: start: 20220607

REACTIONS (1)
  - General physical health deterioration [Not Recovered/Not Resolved]

NARRATIVE: CASE EVENT DATE: 20220531
